FAERS Safety Report 17827326 (Version 1)
Quarter: 2020Q2

REPORT INFORMATION
  Report Type: Spontaneous
  Country: CA (occurrence: CA)
  Receive Date: 20200527
  Receipt Date: 20200527
  Transmission Date: 20200714
  Serious: Yes (Other)
  Sender: FDA-Public Use
  Company Number: CA-SA-2020SA131004

PATIENT
  Age: 58 Year
  Sex: Female
  Weight: 124 kg

DRUGS (24)
  1. METHOTREXATE. [Suspect]
     Active Substance: METHOTREXATE
     Indication: PRODUCT USED FOR UNKNOWN INDICATION
     Dosage: 1 DF, QD
     Route: 065
  2. OTEZLA [Suspect]
     Active Substance: APREMILAST
     Dosage: UNK
     Route: 065
  3. ENBREL [Suspect]
     Active Substance: ETANERCEPT
     Indication: PRODUCT USED FOR UNKNOWN INDICATION
     Dosage: UNK
     Route: 065
  4. HUMIRA [Suspect]
     Active Substance: ADALIMUMAB
     Indication: PSORIATIC ARTHROPATHY
     Dosage: 40 MG
     Route: 058
  5. ENBREL [Suspect]
     Active Substance: ETANERCEPT
     Dosage: 1 DF, QW
     Route: 058
  6. INFLIXIMAB [Suspect]
     Active Substance: INFLIXIMAB
     Indication: PSORIATIC ARTHROPATHY
     Dosage: 400 MG
     Route: 065
  7. METHOTREXATE. [Suspect]
     Active Substance: METHOTREXATE
     Indication: PRODUCT USED FOR UNKNOWN INDICATION
     Dosage: 1 DF, QD
     Route: 048
  8. ADALIMUMAB [Suspect]
     Active Substance: ADALIMUMAB
     Dosage: 1 DF
     Route: 058
  9. SULFASALAZINE. [Suspect]
     Active Substance: SULFASALAZINE
     Indication: PRODUCT USED FOR UNKNOWN INDICATION
     Dosage: 2 DF, QD
     Route: 065
  10. COSENTYX [Suspect]
     Active Substance: SECUKINUMAB
     Indication: PSORIATIC ARTHROPATHY
     Dosage: 1 DF, QM
     Route: 058
  11. ACETAMINOPHEN AND CODEINE [Concomitant]
     Active Substance: ACETAMINOPHEN\CODEINE PHOSPHATE
     Dosage: 3 DF, QD
     Route: 048
  12. AMITRIPTYLINE HCL [Concomitant]
     Active Substance: AMITRIPTYLINE
     Dosage: 50 MG
     Route: 048
  13. ESOMEPRAZOLE MAGNESIUM TRIHYDRATE [Concomitant]
     Active Substance: ESOMEPRAZOLE MAGNESIUM
     Dosage: 1 DF, QD
     Route: 048
  14. MOMETASONE FUROATE. [Concomitant]
     Active Substance: MOMETASONE FUROATE
     Dosage: 50 MG
     Route: 045
  15. GABAPENTIN. [Concomitant]
     Active Substance: GABAPENTIN
     Dosage: 4 DF, QD
     Route: 048
  16. ACETAMINOPHEN AND CODEINE [Concomitant]
     Active Substance: ACETAMINOPHEN\CODEINE PHOSPHATE
     Dosage: 325 MG
  17. HYDROCHLOROTHIAZID [Concomitant]
     Active Substance: HYDROCHLOROTHIAZIDE
     Dosage: 25 MG
     Route: 048
  18. LEFLUNOMIDE. [Suspect]
     Active Substance: LEFLUNOMIDE
     Indication: PRODUCT USED FOR UNKNOWN INDICATION
     Dosage: UNK
     Route: 065
  19. CALCIUM [Concomitant]
     Active Substance: CALCIUM
     Dosage: 2 DF, QD
     Route: 048
  20. ASPIRIN [ACETYLSALICYLIC ACID] [Concomitant]
     Active Substance: ASPIRIN
     Dosage: 1 DF, QD
     Route: 048
  21. BACLOFEN. [Concomitant]
     Active Substance: BACLOFEN
     Dosage: 2 DF, QD
     Route: 048
  22. BETAHISTINE HCL [Concomitant]
     Dosage: 16 MG
     Route: 048
  23. CLONIDINE HYDROCHLORIDE. [Concomitant]
     Active Substance: CLONIDINE HYDROCHLORIDE
     Route: 048
  24. METOPROLOL TARTRATE. [Concomitant]
     Active Substance: METOPROLOL TARTRATE
     Dosage: 2 DF, QD
     Route: 048

REACTIONS (6)
  - Stomatitis [Unknown]
  - Rheumatoid arthritis [Unknown]
  - Drug ineffective [Unknown]
  - Treatment failure [Unknown]
  - Palpitations [Unknown]
  - Therapeutic product effect incomplete [Unknown]
